FAERS Safety Report 10634786 (Version 1)
Quarter: 2014Q4

REPORT INFORMATION
  Report Type: Spontaneous
  Country: US (occurrence: US)
  Receive Date: 20141205
  Receipt Date: 20141205
  Transmission Date: 20150529
  Serious: Yes (Other)
  Sender: FDA-Public Use
  Company Number: US-PFIZER INC-2014329591

PATIENT
  Sex: Female

DRUGS (1)
  1. TOVIAZ [Suspect]
     Active Substance: FESOTERODINE FUMARATE
     Dosage: UNK

REACTIONS (5)
  - Hunger [Unknown]
  - Thinking abnormal [Unknown]
  - Atrial fibrillation [Not Recovered/Not Resolved]
  - Pharyngeal disorder [Unknown]
  - Cystitis [Unknown]
